FAERS Safety Report 5623399-7 (Version None)
Quarter: 2008Q1

REPORT INFORMATION
  Report Type: 
  Country: None (occurrence: None)
  Receive Date: 20080212
  Receipt Date: 20080204
  Transmission Date: 20080703
  Serious: Yes (Other)
  Sender: FDA-Public Use
  Company Number: FR-ALLERGAN-0801355US

PATIENT
  Sex: Female

DRUGS (3)
  1. VISTABEL [Suspect]
     Indication: SKIN WRINKLING
     Dosage: UNK, SINGLE
     Route: 030
     Dates: start: 20070501, end: 20070501
  2. VISTABEL [Suspect]
     Dosage: UNK, SINGLE
     Route: 030
     Dates: start: 20060601, end: 20060601
  3. VISTABEL [Suspect]
     Dosage: UNK, SINGLE
     Route: 030
     Dates: start: 20061101, end: 20061101

REACTIONS (5)
  - BLOOD AMYLASE INCREASED [None]
  - PLATELET COUNT DECREASED [None]
  - PYREXIA [None]
  - RED BLOOD CELL SEDIMENTATION RATE INCREASED [None]
  - WHITE BLOOD CELL COUNT DECREASED [None]
